FAERS Safety Report 6059480-0 (Version None)
Quarter: 2009Q1

REPORT INFORMATION
  Report Type: 
  Country: None (occurrence: None)
  Receive Date: 20090130
  Receipt Date: 20090119
  Transmission Date: 20090719
  Serious: Yes (Death)
  Sender: FDA-Public Use
  Company Number: US-PFIZER INC-2008153515

PATIENT
  Age: 43 Year
  Sex: Male

DRUGS (4)
  1. SERTRALINE HCL [Suspect]
     Route: 048
  2. ATENOLOL [Suspect]
     Route: 048
  3. BUPROPION [Suspect]
     Route: 048
  4. ETHANOL [Suspect]
     Route: 048

REACTIONS (2)
  - COMPLETED SUICIDE [None]
  - DRUG ABUSE [None]
